FAERS Safety Report 6915647-8 (Version None)
Quarter: 2010Q3

REPORT INFORMATION
  Report Type: 
  Country: None (occurrence: None)
  Receive Date: 20100810
  Receipt Date: 20100802
  Transmission Date: 20110219
  Serious: Yes (Other)
  Sender: FDA-Public Use
  Company Number: DE-BAYER-201034868GPV

PATIENT
  Age: 67 Year
  Sex: Male
  Weight: 83 kg

DRUGS (2)
  1. LEVITRA [Suspect]
     Indication: ERECTILE DYSFUNCTION
     Dates: start: 20100715
  2. RASILEZ HCT [Concomitant]
     Indication: HYPERTENSION

REACTIONS (3)
  - HAEMOPTYSIS [None]
  - LUNG INFILTRATION [None]
  - THROMBOCYTOPENIA [None]
